FAERS Safety Report 4493845-3 (Version None)
Quarter: 2004Q4

REPORT INFORMATION
  Report Type: 
  Country: None (occurrence: None)
  Receive Date: 20041102
  Receipt Date: 20041018
  Transmission Date: 20050328
  Serious: Yes (Hospitalization)
  Sender: FDA-Public Use
  Company Number: 2004240464NO

PATIENT
  Age: 68 Year
  Sex: Female

DRUGS (4)
  1. CELEBREX [Suspect]
     Dosage: 200 MG, QD, ORAL
     Route: 048
     Dates: start: 20030101, end: 20041001
  2. ATACAND [Concomitant]
  3. ALBYL-E [Concomitant]
  4. DETRUSITOL (TOLTERODINE L-TARTRATE) [Concomitant]

REACTIONS (1)
  - CEREBRAL INFARCTION [None]
